FAERS Safety Report 5326302-2 (Version None)
Quarter: 2007Q2

REPORT INFORMATION
  Report Type: 
  Country: None (occurrence: None)
  Receive Date: 20070514
  Receipt Date: 20070514
  Transmission Date: 20071010
  Serious: Yes (Other)
  Sender: FDA-Public Use
  Company Number: None

PATIENT
  Age: 33 Year
  Sex: Female
  Weight: 58.9676 kg

DRUGS (3)
  1. CYMBALTA [Suspect]
     Indication: ANXIETY
     Dosage: 1 CAPSULE 1 PER DAY PO
     Route: 048
     Dates: start: 20070301, end: 20070408
  2. CYMBALTA [Suspect]
     Indication: DEPRESSION
     Dosage: 1 CAPSULE 1 PER DAY PO
     Route: 048
     Dates: start: 20070301, end: 20070408
  3. CYMBALTA [Suspect]
     Indication: PAIN
     Dosage: 1 CAPSULE 1 PER DAY PO
     Route: 048
     Dates: start: 20070301, end: 20070408

REACTIONS (4)
  - ANAL FISSURE [None]
  - CONSTIPATION [None]
  - HAEMORRHOIDS [None]
  - PAIN [None]
